FAERS Safety Report 11399970 (Version 1)
Quarter: 2015Q3

REPORT INFORMATION
  Report Type: Spontaneous
  Country: US (occurrence: None)
  Receive Date: 20150819
  Receipt Date: 20150819
  Transmission Date: 20151125
  Serious: Yes (Hospitalization)
  Sender: FDA-Public Use
  Company Number: None

PATIENT
  Age: 18 Year
  Sex: Male
  Weight: 56.7 kg

DRUGS (2)
  1. ETOPOSIDE (VP-16) [Suspect]
     Active Substance: ETOPOSIDE
     Dates: end: 20150721
  2. CYTARABINE. [Suspect]
     Active Substance: CYTARABINE
     Dates: end: 20150722

REACTIONS (7)
  - Respiratory rate increased [None]
  - Tremor [None]
  - Streptococcus test positive [None]
  - Blood pressure decreased [None]
  - Hypotension [None]
  - Tachycardia [None]
  - Chills [None]

NARRATIVE: CASE EVENT DATE: 20150807
